FAERS Safety Report 8095981-1 (Version None)
Quarter: 2012Q1

REPORT INFORMATION
  Report Type: 
  Country: None (occurrence: None)
  Receive Date: 20120129
  Receipt Date: 20111227
  Transmission Date: 20120608
  Serious: No
  Sender: FDA-Public Use
  Company Number: US-ABBOTT-11P-163-0886934-00

PATIENT
  Age: 25 Year
  Sex: Male

DRUGS (3)
  1. HUMIRA [Suspect]
     Indication: PSORIASIS
     Dates: start: 20111221
  2. VISTARIL [Concomitant]
     Indication: BIPOLAR I DISORDER
     Route: 048
  3. PREVACID [Concomitant]
     Indication: HIATUS HERNIA
     Route: 048

REACTIONS (1)
  - INJECTION SITE PAIN [None]
